FAERS Safety Report 7163140-2 (Version None)
Quarter: 2010Q4

REPORT INFORMATION
  Report Type: 
  Country: None (occurrence: None)
  Receive Date: 20101215
  Receipt Date: 20100303
  Transmission Date: 20110411
  Serious: Yes (Other)
  Sender: FDA-Public Use
  Company Number: US-PFIZER INC-2010027236

PATIENT
  Sex: Female

DRUGS (4)
  1. LYRICA [Interacting]
  2. SPIRIVA [Interacting]
  3. GLEEVEC [Interacting]
  4. SPRYCEL [Suspect]

REACTIONS (5)
  - BLOOD COUNT ABNORMAL [None]
  - DRUG INTERACTION [None]
  - GAIT DISTURBANCE [None]
  - MUSCLE TIGHTNESS [None]
  - VOMITING [None]
